FAERS Safety Report 9601739 (Version 1)
Quarter: 2013Q4

REPORT INFORMATION
  Report Type: Spontaneous
  Country: RO (occurrence: None)
  Receive Date: 20131002
  Receipt Date: 20131002
  Transmission Date: 20140711
  Serious: Yes (Other)
  Sender: FDA-Public Use
  Company Number: INT_00312_2013

PATIENT
  Age: 63 Year
  Sex: Male

DRUGS (2)
  1. CISPLATIN [Suspect]
     Indication: CHEMOTHERAPY
     Dosage: 70 MG/M^2
  2. DOCETAXEL (DOCETAXEL) [Suspect]
     Indication: CHEMOTHERAPY

REACTIONS (4)
  - Hepatotoxicity [None]
  - Hepatitis cholestatic [None]
  - Drug-induced liver injury [None]
  - Normochromic normocytic anaemia [None]
